FAERS Safety Report 14015929 (Version 2)
Quarter: 2018Q1

REPORT INFORMATION
  Report Type: Spontaneous
  Country: CH (occurrence: CH)
  Receive Date: 20170927
  Receipt Date: 20180315
  Transmission Date: 20180508
  Serious: Yes (Other)
  Sender: FDA-Public Use
  Company Number: CH-IMPAX LABORATORIES, INC-2017-IPXL-02762

PATIENT
  Age: 53 Year
  Sex: Female

DRUGS (2)
  1. HYDROXYZINE PAMOATE IR [Suspect]
     Active Substance: HYDROXYZINE PAMOATE
     Indication: CHRONIC SPONTANEOUS URTICARIA
     Dosage: UNK, 1 /DAY
     Route: 065
  2. CETIRIZINE [Suspect]
     Active Substance: CETIRIZINE HYDROCHLORIDE
     Indication: CHRONIC SPONTANEOUS URTICARIA
     Dosage: UPTO 3 TIMES HIGHER THAN THE STANDARD DOSE, UNK
     Route: 065

REACTIONS (2)
  - Urticaria [Recovered/Resolved]
  - Angioedema [Recovered/Resolved]
